FAERS Safety Report 8919351 (Version 1)
Quarter: 2012Q4

REPORT INFORMATION
  Report Type: 
  Country: US (occurrence: US)
  Receive Date: 20121121
  Receipt Date: 20121121
  Transmission Date: 20130627
  Serious: No
  Sender: FDA-Public Use
  Company Number: US-PFIZER INC-2012290744

PATIENT
  Age: 70 Year
  Sex: Female
  Weight: 56.68 kg

DRUGS (4)
  1. ADVIL [Suspect]
     Indication: FEVER
     Dosage: 200 mg, 2x/day
     Dates: start: 20121117, end: 20121119
  2. CALTRATE [Concomitant]
     Indication: MENOPAUSE
     Dosage: UNK
  3. SIMVASTATIN [Concomitant]
     Indication: BLOOD CHOLESTEROL ABNORMAL
     Dosage: 20 mg, daily
     Dates: end: 20121117
  4. LEVOTHYROXINE [Concomitant]
     Indication: THYROID DISORDER
     Dosage: 75 ug, daily

REACTIONS (3)
  - Rash [Not Recovered/Not Resolved]
  - Sensation of heaviness [Not Recovered/Not Resolved]
  - Joint range of motion decreased [Not Recovered/Not Resolved]
